FAERS Safety Report 22254394 (Version 1)
Quarter: 2023Q2

REPORT INFORMATION
  Report Type: Spontaneous
  Country: US (occurrence: None)
  Receive Date: 20230425
  Receipt Date: 20230425
  Transmission Date: 20230722
  Serious: Yes (Disabling)
  Sender: FDA-Public Use
  Company Number: None

PATIENT
  Age: 35 Year
  Sex: Female
  Weight: 67.5 kg

DRUGS (13)
  1. NORTRIPTYLINE [Suspect]
     Active Substance: NORTRIPTYLINE
     Indication: Fibromyalgia
     Route: 048
     Dates: start: 20200723, end: 20210406
  2. NORTRIPTYLINE [Suspect]
     Active Substance: NORTRIPTYLINE
     Indication: Depression
  3. NORTRIPTYLINE [Suspect]
     Active Substance: NORTRIPTYLINE
     Indication: Post-traumatic stress disorder
  4. BUSPIRONE [Concomitant]
     Active Substance: BUSPIRONE HYDROCHLORIDE
  5. CLONAZEPAM [Concomitant]
     Active Substance: CLONAZEPAM
  6. DULOXETINE [Concomitant]
     Active Substance: DULOXETINE
  7. odenstran [Concomitant]
  8. RIZATRIPTAN [Concomitant]
     Active Substance: RIZATRIPTAN
  9. TIZANIDINE [Concomitant]
     Active Substance: TIZANIDINE
  10. TOPIRAMATE [Concomitant]
     Active Substance: TOPIRAMATE
  11. VITAMIN D [Concomitant]
     Active Substance: VITAMIN D NOS
  12. MAGNESIUM [Concomitant]
     Active Substance: MAGNESIUM
  13. MULTI-VITAMIN [Concomitant]
     Active Substance: .ALPHA.-TOCOPHEROL ACETATE, DL-\ASCORBIC ACID\CYANOCOBALAMIN\FLUORIDE ION\FOLIC ACID\NIACIN\PYRIDOXI

REACTIONS (26)
  - Anxiety [None]
  - Insomnia [None]
  - Irritability [None]
  - Panic reaction [None]
  - Restlessness [None]
  - Fear [None]
  - Post-traumatic stress disorder [None]
  - Flashback [None]
  - Screaming [None]
  - Emotional disorder [None]
  - Partner stress [None]
  - Catatonia [None]
  - Educational problem [None]
  - Social avoidant behaviour [None]
  - Loss of personal independence in daily activities [None]
  - Impaired work ability [None]
  - Amnesia [None]
  - Memory impairment [None]
  - Language disorder [None]
  - Communication disorder [None]
  - Aphasia [None]
  - Disturbance in attention [None]
  - Dissociative identity disorder [None]
  - Aggression [None]
  - Abnormal behaviour [None]
  - Anxiety [None]

NARRATIVE: CASE EVENT DATE: 20200823
